FAERS Safety Report 9652030 (Version 1)
Quarter: 2013Q4

REPORT INFORMATION
  Report Type: Spontaneous
  Country: US (occurrence: US)
  Receive Date: 20131029
  Receipt Date: 20131029
  Transmission Date: 20140711
  Serious: Yes (Other)
  Sender: FDA-Public Use
  Company Number: US-SA-2013SA109231

PATIENT
  Age: 88 Year
  Sex: Female

DRUGS (1)
  1. PLAVIX [Suspect]
     Route: 065

REACTIONS (8)
  - Fall [Unknown]
  - Cardiac fibrillation [Unknown]
  - Head injury [Unknown]
  - Eye pain [Unknown]
  - Photopsia [Unknown]
  - Haemorrhagic stroke [Unknown]
  - Somnolence [Unknown]
  - Feeling abnormal [Unknown]
